FAERS Safety Report 7784210-1 (Version None)
Quarter: 2011Q3

REPORT INFORMATION
  Report Type: 
  Country: None (occurrence: None)
  Receive Date: 20110926
  Receipt Date: 20110916
  Transmission Date: 20111222
  Serious: Yes (Other)
  Sender: FDA-Public Use
  Company Number: LEO-2011-00752

PATIENT
  Sex: Female

DRUGS (1)
  1. INNOHEP [Suspect]
     Indication: TIBIA FRACTURE
     Dosage: SUBCUTANEOUS
     Route: 058
     Dates: start: 20110801

REACTIONS (1)
  - PHLEBITIS [None]
